FAERS Safety Report 19460450 (Version 1)
Quarter: 2021Q2

REPORT INFORMATION
  Report Type: Spontaneous
  Country: FR (occurrence: FR)
  Receive Date: 20210625
  Receipt Date: 20210625
  Transmission Date: 20210717
  Serious: Yes (Disabling)
  Sender: FDA-Public Use
  Company Number: FR-REGENERON PHARMACEUTICALS, INC.-2021-61822

PATIENT

DRUGS (2)
  1. EYLEA [Suspect]
     Active Substance: AFLIBERCEPT
     Indication: DIABETIC RETINAL OEDEMA
     Dosage: UNK; TOTAL NUMBER OF DOSES UNK; LAST DOSE UNK
     Route: 031
     Dates: start: 201711, end: 20210325
  2. VACCINES [Suspect]
     Active Substance: UNSPECIFIED INGREDIENT
     Indication: COVID-19 IMMUNISATION
     Route: 030
     Dates: start: 20210324, end: 20210324

REACTIONS (2)
  - Retinal artery occlusion [Recovered/Resolved with Sequelae]
  - Retinal vein occlusion [Recovered/Resolved with Sequelae]

NARRATIVE: CASE EVENT DATE: 20210407
